FAERS Safety Report 6083992-7 (Version None)
Quarter: 2009Q1

REPORT INFORMATION
  Report Type: 
  Country: None (occurrence: None)
  Receive Date: 20090219
  Receipt Date: 20090205
  Transmission Date: 20090719
  Serious: Yes (Other)
  Sender: FDA-Public Use
  Company Number: CH-ELI_LILLY_AND_COMPANY-CH200806001495

PATIENT
  Sex: Female
  Weight: 63 kg

DRUGS (4)
  1. CYMBALTA [Suspect]
     Indication: DEPRESSION
     Dosage: 60 MG, DAILY (1/D)
     Route: 048
     Dates: start: 20080312
  2. FOLVITE [Concomitant]
     Indication: PREGNANCY
     Dosage: 1 MG, DAILY (1/D)
     Route: 048
     Dates: start: 20080601
  3. MAGNESIUM SULFATE [Concomitant]
     Indication: PREGNANCY
     Dosage: UNK, UNKNOWN
     Route: 048
     Dates: start: 20080601
  4. ELEVIT [Concomitant]
     Indication: PREGNANCY
     Dosage: 1 D/F, DAILY (1/D)
     Route: 048
     Dates: start: 20080601

REACTIONS (3)
  - DRUG EXPOSURE DURING PREGNANCY [None]
  - HELLP SYNDROME [None]
  - NASOPHARYNGITIS [None]
